FAERS Safety Report 24448896 (Version 5)
Quarter: 2025Q3

REPORT INFORMATION
  Report Type: Spontaneous
  Country: JP (occurrence: JP)
  Receive Date: 20241017
  Receipt Date: 20250809
  Transmission Date: 20251021
  Serious: Yes (Hospitalization, Other)
  Sender: ALEXION PHARMACEUTICALS
  Company Number: JP-ASTRAZENECA-240084395_012620_P_1

PATIENT
  Age: 61 Year
  Sex: Female
  Weight: 61 kg

DRUGS (21)
  1. TRUQAP [Suspect]
     Active Substance: CAPIVASERTIB
     Dosage: 4 DAYS IN A ROW, FOLLOWED BY 3 DAYS OFF
     Dates: start: 20240723, end: 20240802
  2. TRUQAP [Suspect]
     Active Substance: CAPIVASERTIB
     Dosage: 4 DAYS IN A ROW, FOLLOWED BY 3 DAYS OFF
     Dates: start: 20240821
  3. FASLODEX [Suspect]
     Active Substance: FULVESTRANT
     Dosage: DOSE UNKNOWN
     Dates: start: 20151014, end: 20161119
  4. FASLODEX [Suspect]
     Active Substance: FULVESTRANT
  5. FASLODEX [Suspect]
     Active Substance: FULVESTRANT
     Dosage: 500 MILLIGRAM, Q4W
     Dates: start: 20240821
  6. FASLODEX [Suspect]
     Active Substance: FULVESTRANT
     Dates: start: 20151014, end: 20161119
  7. NOLVADEX [Suspect]
     Active Substance: TAMOXIFEN CITRATE
     Dosage: 10 MILLIGRAM, QD
     Dates: start: 20110528, end: 20130214
  8. ZOMETA [Concomitant]
     Active Substance: ZOLEDRONIC ACID
     Indication: Breast cancer
     Route: 065
  9. EXEMESTANE [Concomitant]
     Active Substance: EXEMESTANE
     Indication: Breast cancer
     Dates: start: 20130215, end: 20150310
  10. EXEMESTANE [Concomitant]
     Active Substance: EXEMESTANE
     Indication: Metastases to lung
     Route: 065
  11. FEMARA [Concomitant]
     Active Substance: LETROZOLE
     Indication: Metastases to lung
     Dates: start: 20150320, end: 20150610
  12. XELODA [Concomitant]
     Active Substance: CAPECITABINE
     Indication: Metastases to lung
     Dates: start: 20150610, end: 20150924
  13. TOREMIFENE [Concomitant]
     Active Substance: TOREMIFENE
     Indication: Metastases to lung
     Dosage: DOSE UNKNOWN
     Dates: start: 20161206, end: 20170221
  14. AFINITOR [Concomitant]
     Active Substance: EVEROLIMUS
     Indication: Metastases to lung
     Dosage: DOSE UNKNOWN
     Dates: start: 20170222, end: 20171021
  15. IBRANCE [Concomitant]
     Active Substance: PALBOCICLIB
     Indication: Metastases to lung
     Dosage: DOSE UNKNOWN
     Dates: start: 20171220, end: 20190410
  16. VERZENIO [Concomitant]
     Active Substance: ABEMACICLIB
     Indication: Metastases to lung
     Dosage: DOSE UNKNOWN
     Dates: start: 20190426, end: 20200225
  17. ERIBULIN [Concomitant]
     Active Substance: ERIBULIN
     Indication: Metastases to lung
     Dosage: DOSE UNKNOWN
     Route: 065
     Dates: start: 20200226, end: 20201208
  18. NAVELBINE [Concomitant]
     Active Substance: VINORELBINE TARTRATE
     Indication: Metastases to lung
     Dosage: DOSE UNKNOWN
     Route: 065
     Dates: start: 20201209, end: 20210310
  19. DOCETAXEL [Concomitant]
     Active Substance: DOCETAXEL
     Indication: Breast cancer
     Dosage: DOSE UNKNOWN
     Route: 065
     Dates: start: 20210324, end: 20220511
  20. AVASTIN [Concomitant]
     Active Substance: BEVACIZUMAB
     Indication: Breast cancer
     Dosage: DOSE UNKNOWN
     Route: 065
     Dates: start: 20220629, end: 20240710
  21. PACLITAXEL [Concomitant]
     Active Substance: PACLITAXEL
     Indication: Breast cancer
     Dosage: DOSE UNKNOWN
     Route: 065
     Dates: start: 20220629, end: 20240710

REACTIONS (7)
  - Ovarian cancer [Unknown]
  - Metastases to central nervous system [Unknown]
  - Decreased appetite [Recovered/Resolved]
  - Diarrhoea [Recovered/Resolved]
  - Rash [Recovered/Resolved]
  - Large intestine polyp [Unknown]
  - Diabetes mellitus [Unknown]

NARRATIVE: CASE EVENT DATE: 20130410
